FAERS Safety Report 24928688 (Version 2)
Quarter: 2025Q2

REPORT INFORMATION
  Report Type: Spontaneous
  Country: US (occurrence: US)
  Receive Date: 20250205
  Receipt Date: 20250404
  Transmission Date: 20250716
  Serious: Yes (Life-Threatening, Hospitalization, Other)
  Sender: MERCK SHARP AND DOHME
  Company Number: US-009507513-2502USA001402

PATIENT
  Age: 54 Year
  Sex: Male

DRUGS (11)
  1. BRIDION [Suspect]
     Active Substance: SUGAMMADEX SODIUM
     Indication: Neuromuscular blockade reversal
     Route: 042
     Dates: start: 20241212, end: 20241212
  2. MIDAZOLAM [Concomitant]
     Active Substance: MIDAZOLAM
  3. FENTANYL [Concomitant]
     Active Substance: FENTANYL
  4. LIDOCAINE [Concomitant]
     Active Substance: LIDOCAINE
  5. PROPOFOL [Concomitant]
     Active Substance: PROPOFOL
  6. ROCURONIUM [Concomitant]
     Active Substance: ROCURONIUM BROMIDE
  7. EPHEDRINE [Concomitant]
     Active Substance: EPHEDRINE
  8. GLYCOPYRROLATE [Concomitant]
     Active Substance: GLYCOPYRROLATE
  9. DEXAMETHASONE [Concomitant]
     Active Substance: DEXAMETHASONE
  10. ZOFRAN [Concomitant]
     Active Substance: ONDANSETRON HYDROCHLORIDE
  11. KETOROLAC [Concomitant]
     Active Substance: KETOROLAC TROMETHAMINE

REACTIONS (10)
  - Cardiac arrest [Recovered/Resolved]
  - Bradycardia [Recovered/Resolved]
  - Ventricular tachycardia [Recovered/Resolved]
  - Ventricular fibrillation [Recovered/Resolved]
  - White blood cell count increased [Unknown]
  - Haemoglobin decreased [Unknown]
  - Neutrophil count increased [Unknown]
  - Blood pH decreased [Unknown]
  - Acidosis [Unknown]
  - Hepatic enzyme increased [Unknown]

NARRATIVE: CASE EVENT DATE: 20241201
